FAERS Safety Report 5313044-2 (Version None)
Quarter: 2007Q1

REPORT INFORMATION
  Report Type: 
  Country: None (occurrence: None)
  Receive Date: 20070201
  Receipt Date: 20061013
  Transmission Date: 20070707
  Serious: No
  Sender: FDA-Public Use
  Company Number: VNL_0238_2006

PATIENT
  Age: 58 Year
  Sex: Female

DRUGS (1)
  1. APOKYN [Suspect]
     Indication: PARKINSON'S DISEASE
     Dosage: DF 5XD SC
     Route: 058
     Dates: start: 20061009

REACTIONS (1)
  - NAUSEA [None]
